FAERS Safety Report 13605945 (Version 1)
Quarter: 2017Q2

REPORT INFORMATION
  Report Type: Spontaneous
  Country: US (occurrence: US)
  Receive Date: 20170602
  Receipt Date: 20170602
  Transmission Date: 20170830
  Serious: Yes (Other)
  Sender: FDA-Public Use
  Company Number: US-PFIZER INC-2017235845

PATIENT
  Age: 19 Year
  Sex: Female

DRUGS (2)
  1. EPIPEN JR [Suspect]
     Active Substance: EPINEPHRINE
     Indication: FOOD ALLERGY
     Dosage: 0.3 MG, PRN
     Route: 030
     Dates: start: 20170519, end: 20170519
  2. BENADRYL [Concomitant]
     Active Substance: DIPHENHYDRAMINE HYDROCHLORIDE
     Indication: FOOD ALLERGY
     Dosage: UNK

REACTIONS (3)
  - Drug ineffective [Recovered/Resolved]
  - Abdominal discomfort [Not Recovered/Not Resolved]
  - Chest pain [Recovered/Resolved]

NARRATIVE: CASE EVENT DATE: 20170519
